FAERS Safety Report 10616546 (Version 1)
Quarter: 2014Q4

REPORT INFORMATION
  Report Type: Spontaneous
  Country: DE (occurrence: DE)
  Receive Date: 20141201
  Receipt Date: 20141201
  Transmission Date: 20150529
  Serious: Yes (Other)
  Sender: FDA-Public Use
  Company Number: DE-TEVA-523366GER

PATIENT
  Age: 33 Year
  Sex: Female
  Weight: 97 kg

DRUGS (15)
  1. AZATHIOPRINE. [Suspect]
     Active Substance: AZATHIOPRINE
     Indication: PROPHYLAXIS AGAINST TRANSPLANT REJECTION
     Dosage: 100 MILLIGRAM DAILY; DOSAGE WAS INCREASED DURING PREGNANCY FROM 50 TO 100 MG/D
     Route: 048
     Dates: start: 20130702, end: 20140114
  2. BELOC-ZOK MITE [Concomitant]
     Active Substance: METOPROLOL SUCCINATE
     Indication: RENAL HYPERTENSION
     Route: 048
     Dates: end: 20140114
  3. BETAMETHASONE [Concomitant]
     Active Substance: BETAMETHASONE
     Indication: MATERNAL THERAPY TO ENHANCE FOETAL LUNG MATURITY
     Dosage: IN WEEK 25+3, 25+4 AND AGAIN IN WEEK 28+0
     Route: 065
  4. AMLODIPINE [Concomitant]
     Active Substance: AMLODIPINE BESYLATE
     Indication: RENAL HYPERTENSION
     Dosage: 7.5 MILLIGRAM DAILY; 7.5 MG/D (2.5-0-5)
     Route: 048
  5. DAS GESUNDE PLUS - FOLSAEURE 600 [Concomitant]
     Indication: PROPHYLAXIS OF NEURAL TUBE DEFECT
     Dosage: .6 MILLIGRAM DAILY;
     Route: 048
     Dates: start: 20130702, end: 20131217
  6. METOPROLOL SUCCINATE. [Suspect]
     Active Substance: METOPROLOL SUCCINATE
     Indication: RENAL HYPERTENSION
     Route: 048
     Dates: start: 20130702, end: 20131217
  7. METHYLDOPA. [Suspect]
     Active Substance: METHYLDOPA
     Indication: RENAL HYPERTENSION
     Dosage: 500 MILLIGRAM DAILY; 500 MG/D (2 X 250)
     Route: 048
     Dates: start: 2010, end: 20140114
  8. PROGRAF [Suspect]
     Active Substance: TACROLIMUS\TACROLIMUS ANHYDROUS
     Indication: PROPHYLAXIS AGAINST TRANSPLANT REJECTION
     Dosage: 3-0-2.5 MG/D
     Route: 048
     Dates: start: 2007, end: 20140114
  9. PARTUSISTEN [Concomitant]
     Active Substance: FENOTEROL
     Indication: TOCOLYSIS
     Route: 042
     Dates: start: 20140114, end: 20140114
  10. METOPROLOL SUCCINATE. [Suspect]
     Active Substance: METOPROLOL SUCCINATE
     Route: 048
     Dates: start: 2012, end: 201307
  11. DEKRISTOL 20000 I.E. [Concomitant]
     Indication: VITAMIN SUPPLEMENTATION
     Route: 048
     Dates: start: 2007, end: 20131217
  12. AZATHIOPRINE. [Suspect]
     Active Substance: AZATHIOPRINE
     Dosage: 50 MILLIGRAM DAILY; SINCE 2012. DOSAGE WAS INCREASED DURING PREGNANCY FROM 50 TO 100 MG/D
     Route: 048
     Dates: start: 2012, end: 201307
  13. L-THYROXIN 25 HENNING [Concomitant]
     Indication: HYPOTHYROIDISM
     Dosage: 25 MICROGRAM DAILY;
     Route: 048
     Dates: start: 20130702, end: 20140114
  14. ADALAT [Concomitant]
     Active Substance: NIFEDIPINE
     Indication: TOCOLYSIS
     Route: 042
  15. AMPICILLIN [Concomitant]
     Active Substance: AMPICILLIN
     Indication: ANTIBIOTIC PROPHYLAXIS
     Route: 065
     Dates: start: 20140114, end: 20140114

REACTIONS (5)
  - Cervical incompetence [Unknown]
  - Premature labour [Unknown]
  - Premature rupture of membranes [Unknown]
  - Polyhydramnios [Recovered/Resolved]
  - Live birth [Unknown]
